FAERS Safety Report 11459220 (Version 2)
Quarter: 2015Q3

REPORT INFORMATION
  Report Type: Report from Study
  Country: FR (occurrence: FR)
  Receive Date: 20150904
  Receipt Date: 20150908
  Transmission Date: 20151125
  Serious: Yes (Hospitalization, Disabling, Other)
  Sender: FDA-Public Use
  Company Number: FR-ABBVIE-15P-056-1417576-00

PATIENT
  Age: 67 Year
  Sex: Female
  Weight: 53 kg

DRUGS (6)
  1. SINEMET [Concomitant]
     Active Substance: CARBIDOPA\LEVODOPA
     Indication: PARKINSON^S DISEASE
     Route: 048
  2. DUODOPA [Suspect]
     Active Substance: CARBIDOPA\LEVODOPA
     Dosage: MD 13ML; ED 4ML AT 04:00PM; CONTINUOUS FLOW RATE DURING THE DAY 4ML/H
     Route: 050
     Dates: start: 20141119, end: 20150626
  3. MODOPAR [Concomitant]
     Active Substance: BENSERAZIDE HYDROCHLORIDE\LEVODOPA
     Indication: PRODUCT USED FOR UNKNOWN INDICATION
     Route: 048
  4. MODOPAR [Concomitant]
     Active Substance: BENSERAZIDE HYDROCHLORIDE\LEVODOPA
     Indication: PRODUCT USED FOR UNKNOWN INDICATION
     Dosage: AT 5:00AM
     Route: 048
  5. DUODOPA [Suspect]
     Active Substance: CARBIDOPA\LEVODOPA
     Indication: PARKINSON^S DISEASE
     Route: 050
     Dates: start: 2010
  6. AMANTADINE [Concomitant]
     Active Substance: AMANTADINE
     Indication: PARKINSON^S DISEASE
     Route: 048

REACTIONS (14)
  - Anxiety [Unknown]
  - Stoma site extravasation [Unknown]
  - Stoma site discharge [Recovering/Resolving]
  - Abdominal wall abscess [Recovering/Resolving]
  - Device kink [Recovering/Resolving]
  - Stoma site erythema [Unknown]
  - Gastric fistula [Recovering/Resolving]
  - Akinesia [Unknown]
  - Abdominal tenderness [Unknown]
  - On and off phenomenon [Unknown]
  - Asthenia [Unknown]
  - Stoma site extravasation [Recovering/Resolving]
  - Abdominal pain [Unknown]
  - Device leakage [Recovering/Resolving]

NARRATIVE: CASE EVENT DATE: 201110
